FAERS Safety Report 4865652-0 (Version None)
Quarter: 2005Q4

REPORT INFORMATION
  Report Type: 
  Country: None (occurrence: None)
  Receive Date: 20051220
  Receipt Date: 20051209
  Transmission Date: 20060501
  Serious: Yes (Other)
  Sender: FDA-Public Use
  Company Number: 2005157891

PATIENT
  Age: 46 Year
  Sex: Female
  Weight: 59.8748 kg

DRUGS (2)
  1. ZOLOFT [Suspect]
     Indication: DEPRESSION
     Dosage: ORAL
     Route: 048
     Dates: start: 20051026, end: 20051101
  2. FLEXERIL [Concomitant]

REACTIONS (3)
  - GRAND MAL CONVULSION [None]
  - INSOMNIA [None]
  - UPPER LIMB FRACTURE [None]
